FAERS Safety Report 12573066 (Version 2)
Quarter: 2016Q3

REPORT INFORMATION
  Report Type: Report from Study
  Country: JP (occurrence: JP)
  Receive Date: 20160720
  Receipt Date: 20160930
  Transmission Date: 20161109
  Serious: Yes (Other)
  Sender: FDA-Public Use
  Company Number: JP-AMGEN-JPNNI2016093395

PATIENT
  Age: 75 Year
  Sex: Male
  Weight: 35 kg

DRUGS (18)
  1. 5-FU                               /00098801/ [Suspect]
     Active Substance: FLUOROURACIL
     Dosage: 979.5 MG, UNK
     Route: 041
     Dates: start: 20160229, end: 20160304
  2. ALOXI [Concomitant]
     Active Substance: PALONOSETRON HYDROCHLORIDE
     Dosage: UNK
     Route: 042
  3. PEGFILGRASTIM [Suspect]
     Active Substance: PEGFILGRASTIM
     Dosage: 3.6 MG, UNK
     Route: 058
     Dates: start: 20160328, end: 20160328
  4. 5-FU                               /00098801/ [Suspect]
     Active Substance: FLUOROURACIL
     Indication: OROPHARYNGEAL CANCER
     Dosage: 979.5 MG, UNK
     Route: 041
     Dates: start: 20160209, end: 20160213
  5. ONETAXOTERE [Suspect]
     Active Substance: DOCETAXEL
     Dosage: 97.95 MG, UNK
     Route: 041
     Dates: start: 20160229, end: 20160229
  6. CISPLATIN. [Suspect]
     Active Substance: CISPLATIN
     Indication: OROPHARYNGEAL CANCER
     Dosage: 97.95 MG, UNK
     Route: 041
     Dates: start: 20160209, end: 20160209
  7. PROEMEND [Concomitant]
     Active Substance: FOSAPREPITANT
     Dosage: UNK
     Route: 041
  8. MANNITOL. [Concomitant]
     Active Substance: MANNITOL
     Dosage: UNK
     Route: 041
  9. GASTER [Concomitant]
     Active Substance: FAMOTIDINE
     Dosage: UNK
     Route: 065
  10. PEGFILGRASTIM [Suspect]
     Active Substance: PEGFILGRASTIM
     Indication: COLONY STIMULATING FACTOR PROPHYLAXIS
     Dosage: 3.6 MG, UNK
     Route: 058
     Dates: start: 20160215, end: 20160215
  11. ONETAXOTERE [Suspect]
     Active Substance: DOCETAXEL
     Indication: OROPHARYNGEAL CANCER
     Dosage: 97.95 MG, UNK
     Route: 041
     Dates: start: 20160209, end: 20160209
  12. 5-FU                               /00098801/ [Suspect]
     Active Substance: FLUOROURACIL
     Dosage: 783.6 MG, UNK
     Route: 041
     Dates: start: 20160322, end: 20160326
  13. ONETAXOTERE [Suspect]
     Active Substance: DOCETAXEL
     Dosage: 78.36 MG, UNK
     Route: 041
     Dates: start: 20160322, end: 20160322
  14. CISPLATIN. [Suspect]
     Active Substance: CISPLATIN
     Dosage: 97.95 MG, UNK
     Route: 041
     Dates: start: 20160229, end: 20160229
  15. CISPLATIN. [Suspect]
     Active Substance: CISPLATIN
     Dosage: 78.36 MG, UNK
     Route: 041
     Dates: start: 20160322, end: 20160322
  16. LASIX [Concomitant]
     Active Substance: FUROSEMIDE
     Dosage: UNK
     Route: 042
  17. PEGFILGRASTIM [Suspect]
     Active Substance: PEGFILGRASTIM
     Dosage: 3.6 MG, UNK
     Route: 058
     Dates: start: 20160306, end: 20160306
  18. DECADRON [Concomitant]
     Active Substance: DEXAMETHASONE
     Dosage: UNK
     Route: 065

REACTIONS (3)
  - White blood cell count decreased [Recovering/Resolving]
  - Neutrophil count decreased [Recovering/Resolving]
  - Chemotherapy [Unknown]

NARRATIVE: CASE EVENT DATE: 20160308
